FAERS Safety Report 8481405-9 (Version None)
Quarter: 2012Q3

REPORT INFORMATION
  Report Type: 
  Country: None (occurrence: None)
  Receive Date: 20120702
  Receipt Date: 20120622
  Transmission Date: 20120928
  Serious: Yes (Hospitalization)
  Sender: FDA-Public Use
  Company Number: US-BAYER-2012-024448

PATIENT
  Age: 43 Year
  Sex: Female
  Weight: 70.295 kg

DRUGS (6)
  1. ADDERALL XR 10 [Concomitant]
     Indication: ATTENTION DEFICIT/HYPERACTIVITY DISORDER
     Dosage: 20 MG, DAILY
     Dates: start: 20081101, end: 20090601
  2. YAZ [Suspect]
     Indication: PREMENSTRUAL SYNDROME
     Dosage: UNK
     Dates: start: 20081201, end: 20090601
  3. YAZ [Suspect]
     Indication: MENORRHAGIA
  4. EFFEXOR XR [Concomitant]
     Indication: DEPRESSION
     Dosage: 150 MG, DAILY
  5. VENLAFAXINE HYDROCHOLRIDE [Concomitant]
     Indication: DEPRESSION
     Dosage: UNK
     Dates: start: 20080601
  6. HYDROCHLOROTHIAZIDE [Concomitant]
     Indication: HYPERTENSION
     Dosage: 25 MG, DAILY
     Dates: start: 20080601, end: 20100801

REACTIONS (21)
  - DEEP VEIN THROMBOSIS [None]
  - SUPRAVENTRICULAR TACHYCARDIA [None]
  - ARTHRALGIA [None]
  - MIGRAINE [None]
  - DIZZINESS [None]
  - GENERAL PHYSICAL HEALTH DETERIORATION [None]
  - CONDITION AGGRAVATED [None]
  - MENORRHAGIA [None]
  - BACK PAIN [None]
  - BLOOD PRESSURE INCREASED [None]
  - MALAISE [None]
  - NECK PAIN [None]
  - PAIN [None]
  - PANIC ATTACK [None]
  - PULMONARY EMBOLISM [None]
  - EMOTIONAL DISTRESS [None]
  - INTERNATIONAL NORMALISED RATIO INCREASED [None]
  - SCAR [None]
  - INJURY [None]
  - ANXIETY [None]
  - ATRIAL TACHYCARDIA [None]
